FAERS Safety Report 8738401 (Version 7)
Quarter: 2016Q4

REPORT INFORMATION
  Report Type: Spontaneous
  Country: US (occurrence: US)
  Receive Date: 20120823
  Receipt Date: 20161017
  Transmission Date: 20170207
  Serious: Yes (Hospitalization, Disabling, Other)
  Sender: FDA-Public Use
  Company Number: US-009507513-1208USA005560

PATIENT
  Sex: Male
  Weight: 107.94 kg

DRUGS (1)
  1. PROPECIA [Suspect]
     Active Substance: FINASTERIDE
     Indication: ALOPECIA
     Dosage: 1 MG, QD
     Route: 048
     Dates: start: 200106, end: 201106

REACTIONS (26)
  - Blepharoplasty [Unknown]
  - Limb injury [Not Recovered/Not Resolved]
  - Emotional distress [Not Recovered/Not Resolved]
  - Weight increased [Unknown]
  - Semen volume decreased [Unknown]
  - Neck injury [Not Recovered/Not Resolved]
  - Excessive skin [Unknown]
  - Gout [Unknown]
  - Ejaculation disorder [Unknown]
  - Anxiety [Not Recovered/Not Resolved]
  - Hypogonadism [Recovering/Resolving]
  - Abdominal pain upper [Unknown]
  - Body fat disorder [Unknown]
  - Tendon rupture [Unknown]
  - Back injury [Not Recovered/Not Resolved]
  - Renal cyst [Not Recovered/Not Resolved]
  - Weight increased [Unknown]
  - Limb operation [Unknown]
  - Orgasm abnormal [Unknown]
  - Erectile dysfunction [Not Recovered/Not Resolved]
  - Gynaecomastia [Unknown]
  - Spinal fusion surgery [Unknown]
  - Sexual dysfunction [Not Recovered/Not Resolved]
  - Tendon rupture [Unknown]
  - Nasal septal operation [Unknown]
  - Azotaemia [Unknown]

NARRATIVE: CASE EVENT DATE: 2001
